FAERS Safety Report 9355653 (Version 1)
Quarter: 2013Q2

REPORT INFORMATION
  Report Type: Report from Study
  Country: AU (occurrence: AU)
  Receive Date: 20130619
  Receipt Date: 20130619
  Transmission Date: 20140414
  Serious: Yes (Hospitalization)
  Sender: FDA-Public Use
  Company Number: AU-BRISTOL-MYERS SQUIBB COMPANY-19022649

PATIENT
  Age: 82 Year
  Sex: Male

DRUGS (11)
  1. CETUXIMAB [Suspect]
     Indication: COLORECTAL CANCER METASTATIC
     Dosage: LAST DOSE:05JUN2013
     Route: 042
     Dates: start: 20130521
  2. IRINOTECAN [Suspect]
     Indication: COLORECTAL CANCER METASTATIC
     Dosage: LAST DOSE:05JUN2013
     Route: 042
     Dates: start: 20130521
  3. LEUCOVORIN [Suspect]
     Indication: COLORECTAL CANCER METASTATIC
     Dosage: LAST DOSE:05JUN2013
     Route: 042
     Dates: start: 20130521
  4. FLUOROURACIL [Suspect]
     Indication: COLORECTAL CANCER METASTATIC
     Dosage: LAST DOSE:05JUN2013
     Route: 042
     Dates: start: 20130521
  5. STEMETIL [Concomitant]
     Indication: NAUSEA
     Route: 048
     Dates: start: 20130222, end: 20130528
  6. ENDONE [Concomitant]
     Indication: ABDOMINAL PAIN
     Route: 048
     Dates: start: 20130514
  7. HALOPERIDOL [Concomitant]
     Indication: NAUSEA
     Route: 048
     Dates: start: 20130528
  8. APREPITANT [Concomitant]
     Indication: NAUSEA
     Route: 048
     Dates: start: 20130528
  9. LORATADINE [Concomitant]
     Route: 048
     Dates: start: 20130521
  10. ALOXI [Concomitant]
     Route: 042
     Dates: start: 20130521
  11. DEXAMETHASONE [Concomitant]
     Dosage: 21MAY2013-ONG:8 MG?28MAY2013:4MG
     Route: 048
     Dates: start: 20130521

REACTIONS (1)
  - Melaena [Not Recovered/Not Resolved]
